FAERS Safety Report 9634088 (Version 2)
Quarter: 2014Q3

REPORT INFORMATION
  Report Type: Report from Study
  Country: IT (occurrence: IT)
  Receive Date: 20131021
  Receipt Date: 20140917
  Transmission Date: 20150326
  Serious: Yes (Life-Threatening, Hospitalization, Other)
  Sender: FDA-Public Use
  Company Number: IT-INCYTE CORPORATION-2013IN002378

PATIENT

DRUGS (8)
  1. ZYLORIC [Concomitant]
     Active Substance: ALLOPURINOL
     Dosage: UNK
     Dates: start: 20100111
  2. INC424 [Suspect]
     Active Substance: RUXOLITINIB
     Indication: MYELOFIBROSIS
     Dosage: 20 MG, BID
     Route: 048
     Dates: start: 20120510, end: 20130924
  3. TENORMIN [Concomitant]
     Active Substance: ATENOLOL
     Dosage: UNK
     Route: 048
     Dates: start: 20120430
  4. INC424 [Suspect]
     Active Substance: RUXOLITINIB
     Dosage: 10 MG, BID
     Route: 048
     Dates: start: 20130925, end: 20131006
  5. MEPRAL [Concomitant]
     Active Substance: OMEPRAZOLE SODIUM
     Dosage: UNK
     Route: 048
  6. NORVASC [Concomitant]
     Active Substance: AMLODIPINE BESYLATE
     Dosage: UNK
     Route: 048
     Dates: start: 20120430
  7. DESFERAL [Concomitant]
     Active Substance: DEFEROXAMINE MESYLATE
     Indication: CHELATION THERAPY
     Dosage: UNK
     Dates: start: 20110901
  8. LASIX [Concomitant]
     Active Substance: FUROSEMIDE
     Indication: RENAL FAILURE
     Dosage: UNK

REACTIONS (2)
  - Atypical mycobacterial infection [Unknown]
  - Pyrexia [Recovered/Resolved]

NARRATIVE: CASE EVENT DATE: 20131004
